FAERS Safety Report 21647472 (Version 2)
Quarter: 2022Q4

REPORT INFORMATION
  Report Type: Report from Study
  Country: US (occurrence: US)
  Receive Date: 20221128
  Receipt Date: 20221229
  Transmission Date: 20230113
  Serious: No
  Sender: FDA-Public Use
  Company Number: US-ABBVIE-4212063

PATIENT
  Age: 56 Year
  Sex: Female

DRUGS (1)
  1. HUMIRA [Suspect]
     Active Substance: ADALIMUMAB
     Indication: Rheumatoid arthritis
     Dosage: CF
     Route: 058

REACTIONS (4)
  - Injection site pain [Recovered/Resolved]
  - Neuralgia [Not Recovered/Not Resolved]
  - Injection site pain [Recovered/Resolved]
  - Endodontic procedure [Not Recovered/Not Resolved]

NARRATIVE: CASE EVENT DATE: 20221128
